FAERS Safety Report 5983356-8 (Version None)
Quarter: 2008Q4

REPORT INFORMATION
  Report Type: 
  Country: None (occurrence: None)
  Receive Date: 20081208
  Receipt Date: 20080306
  Transmission Date: 20090506
  Serious: No
  Sender: FDA-Public Use
  Company Number: US-AMGEN-KDL265273

PATIENT
  Sex: Female

DRUGS (4)
  1. ENBREL [Suspect]
     Indication: RHEUMATOID ARTHRITIS
     Route: 058
     Dates: start: 20080122
  2. ARAVA [Concomitant]
     Dates: start: 20070901
  3. PREDNISONE TAB [Concomitant]
     Dates: start: 20060801
  4. HYDROXYCHLOROQUINE SULFATE [Concomitant]
     Dates: start: 20070901

REACTIONS (6)
  - ACNE [None]
  - DRY SKIN [None]
  - EPHELIDES [None]
  - INJECTION SITE PAIN [None]
  - RASH [None]
  - RASH ERYTHEMATOUS [None]
